FAERS Safety Report 17562279 (Version 1)
Quarter: 2020Q1

REPORT INFORMATION
  Report Type: Spontaneous
  Country: GB (occurrence: GB)
  Receive Date: 20200319
  Receipt Date: 20200319
  Transmission Date: 20200409
  Serious: Yes (Life-Threatening)
  Sender: FDA-Public Use
  Company Number: GB-MYLANLABS-2020M1028826

PATIENT
  Age: 76 Year
  Sex: Female

DRUGS (10)
  1. CITALOPRAM [Concomitant]
     Active Substance: CITALOPRAM HYDROBROMIDE
     Dosage: 1 DOSAGE FORM, QD
     Dates: start: 20180709
  2. LEVOTHYROXINE. [Concomitant]
     Active Substance: LEVOTHYROXINE
     Dosage: EVERY OTHER MORNING
     Dates: start: 20180709
  3. ASPIRIN                            /00002701/ [Concomitant]
     Active Substance: ASPIRIN
     Dosage: 1 DOSAGE FORM, QD
     Dates: start: 20190521
  4. NASEPTIN [Concomitant]
     Active Substance: CHLORHEXIDINE HYDROCHLORIDE\NEOMYCIN SULFATE
     Dosage: 4 DOSAGE FORM, QD
     Route: 045
     Dates: start: 20200212
  5. ISOSORBIDE MONONITRATE. [Concomitant]
     Active Substance: ISOSORBIDE MONONITRATE
     Dosage: 2 DOSAGE FORM, QD
     Dates: start: 20190521
  6. BISOPROLOL [Concomitant]
     Active Substance: BISOPROLOL
     Dosage: 1 DOSAGE FORM, QD
     Dates: start: 20190530
  7. ATORVASTATIN [Concomitant]
     Active Substance: ATORVASTATIN
     Dosage: IN THE EVENING
     Dates: start: 20190521
  8. LANSOPRAZOLE. [Concomitant]
     Active Substance: LANSOPRAZOLE
     Dosage: 1 DOSAGE FORM, QD
     Dates: start: 20191128
  9. TICAGRELOR. [Concomitant]
     Active Substance: TICAGRELOR
     Dosage: 2 DOSAGE FORM, QD
     Dates: start: 20200117
  10. CLOPIDOGREL [Suspect]
     Active Substance: CLOPIDOGREL BISULFATE
     Indication: PRODUCT USED FOR UNKNOWN INDICATION
     Dosage: TAKE FOR 1 YEAR (75MG, QD)
     Dates: start: 20191128, end: 20200117

REACTIONS (1)
  - Neutropenic sepsis [Recovering/Resolving]
